FAERS Safety Report 10134128 (Version 2)
Quarter: 2014Q2

REPORT INFORMATION
  Report Type: Spontaneous
  Country: US (occurrence: US)
  Receive Date: 20140428
  Receipt Date: 20140428
  Transmission Date: 20141212
  Serious: No
  Sender: FDA-Public Use
  Company Number: US-ASTELLAS-2014US003060

PATIENT
  Age: 79 Year
  Sex: Male

DRUGS (2)
  1. LEXISCAN [Suspect]
     Indication: SCAN MYOCARDIAL PERFUSION
     Route: 042
     Dates: start: 20140317, end: 20140317
  2. ISOTOPE THERAPY (90Y-DOTA TATE) [Suspect]
     Indication: PRODUCT USED FOR UNKNOWN INDICATION
     Dosage: UNK UNK, UNKNOWN FREQ.
     Route: 065
     Dates: start: 20140317, end: 20140317

REACTIONS (1)
  - Injection site extravasation [Recovered/Resolved]
